FAERS Safety Report 6481998-7 (Version None)
Quarter: 2009Q4

REPORT INFORMATION
  Report Type: 
  Country: None (occurrence: None)
  Receive Date: 20091208
  Receipt Date: 20090818
  Transmission Date: 20100525
  Serious: No
  Sender: FDA-Public Use
  Company Number: US-AMGEN-KDL341152

PATIENT
  Sex: Female

DRUGS (26)
  1. ENBREL [Suspect]
     Indication: RHEUMATOID ARTHRITIS
     Route: 058
     Dates: start: 20090601, end: 20090801
  2. LEFLUNOMIDE [Concomitant]
     Route: 048
  3. LEVOTHYROXINE SODIUM [Concomitant]
  4. ATENOLOL [Concomitant]
  5. FELODIPINE [Concomitant]
  6. CELEBREX [Concomitant]
  7. PREDNISONE [Concomitant]
     Dates: start: 20090127
  8. FUROSEMIDE [Concomitant]
  9. ENABLEX [Concomitant]
  10. LORATADINE [Concomitant]
  11. FOLIC ACID [Concomitant]
  12. SPIRIVA [Concomitant]
  13. REQUIP [Concomitant]
  14. PROMETHAZINE [Concomitant]
  15. AMITRIPTYLINE W/PERPHENAZINE [Concomitant]
  16. LUNESTA [Concomitant]
  17. LANTUS [Concomitant]
  18. NOVOLOG [Concomitant]
  19. BONIVA [Concomitant]
  20. LORTAB [Concomitant]
  21. MEDROL [Concomitant]
  22. OXYCONTIN [Concomitant]
  23. PNEUMOVAX 23 [Concomitant]
  24. DETROL [Concomitant]
  25. AMARYL [Concomitant]
  26. TRAZODONE [Concomitant]

REACTIONS (2)
  - BALANCE DISORDER [None]
  - DIZZINESS EXERTIONAL [None]
